FAERS Safety Report 5293273-7 (Version None)
Quarter: 2007Q1

REPORT INFORMATION
  Report Type: 
  Country: None (occurrence: None)
  Receive Date: 20070116
  Receipt Date: 20051208
  Transmission Date: 20070707
  Serious: Yes (Other)
  Sender: FDA-Public Use
  Company Number: HQWYE934109DEC05

PATIENT
  Sex: Female

DRUGS (1)
  1. PREMPHASE 14/14 [Suspect]
     Dosage: ORAL
     Route: 048
     Dates: start: 19990101, end: 20021101

REACTIONS (1)
  - BREAST CANCER [None]
